FAERS Safety Report 4918032-3 (Version None)
Quarter: 2006Q1

REPORT INFORMATION
  Report Type: 
  Country: None (occurrence: None)
  Receive Date: 20060221
  Receipt Date: 20050715
  Transmission Date: 20060701
  Serious: Yes (Hospitalization)
  Sender: FDA-Public Use
  Company Number: US-MERCK-0507USA02512

PATIENT
  Age: 45 Year
  Sex: Male
  Weight: 118 kg

DRUGS (7)
  1. VIOXX [Suspect]
     Indication: ARTHRITIS
     Route: 048
     Dates: start: 19990707, end: 20040430
  2. VIOXX [Suspect]
     Indication: MYOSITIS
     Route: 048
     Dates: start: 19990707, end: 20040430
  3. ZOCOR [Concomitant]
     Route: 048
  4. CARTIA XT [Concomitant]
     Route: 065
  5. ROBAXIN [Concomitant]
     Route: 065
  6. PREVACID [Concomitant]
     Indication: GASTROOESOPHAGEAL REFLUX DISEASE
     Route: 065
  7. ANTIVERT [Concomitant]
     Route: 065

REACTIONS (10)
  - ABDOMINAL PAIN [None]
  - ACCIDENT [None]
  - ANIMAL BITE [None]
  - CORONARY ARTERY DISEASE [None]
  - DRUG INEFFECTIVE [None]
  - EAR INFECTION [None]
  - EJACULATION DISORDER [None]
  - MYOCARDIAL INFARCTION [None]
  - PAIN IN EXTREMITY [None]
  - VOMITING [None]
